FAERS Safety Report 7169847-5 (Version None)
Quarter: 2010Q4

REPORT INFORMATION
  Report Type: 
  Country: None (occurrence: None)
  Receive Date: 20101217
  Receipt Date: 20101207
  Transmission Date: 20110411
  Serious: Yes (Other)
  Sender: FDA-Public Use
  Company Number: PHFR2010GB05760

PATIENT
  Sex: Male

DRUGS (2)
  1. TEGRETOL [Suspect]
     Dosage: 250 MG, QD
     Route: 048
  2. TEGRETOL [Suspect]
     Dosage: 250 MG, QID
     Route: 048

REACTIONS (2)
  - OESOPHAGEAL NEOPLASM [None]
  - ORAL DISORDER [None]
